FAERS Safety Report 14147827 (Version 1)
Quarter: 2017Q4

REPORT INFORMATION
  Report Type: Spontaneous
  Country: US (occurrence: US)
  Receive Date: 20171031
  Receipt Date: 20171031
  Transmission Date: 20180321
  Serious: Yes (Other)
  Sender: FDA-Public Use
  Company Number: US-ALLERGAN-1748335US

PATIENT
  Age: 81 Year
  Sex: Male

DRUGS (1)
  1. ANDRODERM [Suspect]
     Active Substance: TESTOSTERONE
     Indication: BLOOD TESTOSTERONE DECREASED
     Dosage: 1 DF, QHS
     Route: 065
     Dates: start: 2015

REACTIONS (4)
  - Frequent bowel movements [Not Recovered/Not Resolved]
  - Nocturia [Unknown]
  - Blood testosterone decreased [Unknown]
  - Rectal cancer [Unknown]

NARRATIVE: CASE EVENT DATE: 201702
